FAERS Safety Report 23175759 (Version 1)
Quarter: 2023Q4

REPORT INFORMATION
  Report Type: Spontaneous
  Country: US (occurrence: US)
  Receive Date: 20231113
  Receipt Date: 20231113
  Transmission Date: 20240110
  Serious: No
  Sender: FDA-Public Use
  Company Number: US-GLAXOSMITHKLINE-USCH2023053444

PATIENT

DRUGS (3)
  1. AVOBENZONE\DIMETHICONE\HOMOSALATE\OCTINOXATE\OCTISALATE\OXYBENZONE [Suspect]
     Active Substance: AVOBENZONE\DIMETHICONE\HOMOSALATE\OCTINOXATE\OCTISALATE\OXYBENZONE
     Indication: Product used for unknown indication
     Dosage: UNK
  2. CHAPSTICK CLASSIC CHERRY [Suspect]
     Active Substance: PETROLATUM
     Indication: Product used for unknown indication
     Dosage: UNK
  3. CHAPSTICK NOS [Suspect]
     Active Substance: AVOBENZONE\HOMOSALATE\OCTINOXATE\OCTISALATE\OCTOCRYLENE\OXYBENZONE\TITANIUM DIOXIDE\ZINC OXIDE
     Indication: Product used for unknown indication
     Dosage: UNK

REACTIONS (3)
  - Lip exfoliation [Unknown]
  - Lip dry [Unknown]
  - Condition aggravated [Unknown]
